FAERS Safety Report 17243660 (Version 1)
Quarter: 2019Q4

REPORT INFORMATION
  Report Type: Spontaneous
  Country: US (occurrence: US)
  Receive Date: 20191212
  Receipt Date: 20191212
  Transmission Date: 20200122
  Serious: Yes (Hospitalization)
  Sender: FDA-Public Use
  Company Number: None

PATIENT
  Age: 46 Year
  Sex: Male
  Weight: 73.4 kg

DRUGS (4)
  1. CYTARABINE. [Suspect]
     Active Substance: CYTARABINE
     Dates: end: 20191206
  2. ETOPOSIDE (VP-16) [Suspect]
     Active Substance: ETOPOSIDE
     Dates: end: 20191206
  3. ONCASPAR [Suspect]
     Active Substance: PEGASPARGASE
     Dates: end: 20191206
  4. METHOTREXATE. [Suspect]
     Active Substance: METHOTREXATE
     Dates: end: 20191202

REACTIONS (11)
  - Bacterial infection [None]
  - Productive cough [None]
  - Chest pain [None]
  - Heart rate increased [None]
  - Cough [None]
  - Respiratory syncytial virus test positive [None]
  - Chills [None]
  - Pyrexia [None]
  - White blood cell count decreased [None]
  - Platelet count decreased [None]
  - Blood pressure increased [None]

NARRATIVE: CASE EVENT DATE: 20191209
